FAERS Safety Report 10003376 (Version 1)
Quarter: 2014Q1

REPORT INFORMATION
  Report Type: Spontaneous
  Country: US (occurrence: US)
  Receive Date: 20140312
  Receipt Date: 20140312
  Transmission Date: 20141002
  Serious: No
  Sender: FDA-Public Use
  Company Number: US-ASTRAZENECA-2013SE50238

PATIENT
  Age: 62 Year
  Sex: Male
  Weight: 88 kg

DRUGS (5)
  1. CASODEX [Suspect]
     Indication: PROSTATE CANCER METASTATIC
     Dosage: GENERIC, 50 MG, EVERY MORNING
     Route: 048
     Dates: start: 2013, end: 201306
  2. LUPRON [Concomitant]
  3. IBUPROPHEN [Concomitant]
  4. ULRAM [Concomitant]
  5. PROSCAR [Concomitant]

REACTIONS (3)
  - Diarrhoea [Recovering/Resolving]
  - Arthralgia [Recovering/Resolving]
  - Nausea [Recovering/Resolving]
